FAERS Safety Report 8321644-0 (Version None)
Quarter: 2012Q2

REPORT INFORMATION
  Report Type: 
  Country: None (occurrence: None)
  Receive Date: 20120430
  Receipt Date: 20120426
  Transmission Date: 20120825
  Serious: Yes (Other)
  Sender: FDA-Public Use
  Company Number: IT-BAYER-2012-041197

PATIENT
  Age: 75 Year
  Sex: Male

DRUGS (1)
  1. CIPROFLOXACIN HCL [Suspect]
     Indication: PROSTATITIS
     Dosage: DAILY DOSE 750 MG
     Route: 048
     Dates: start: 20120423, end: 20120424

REACTIONS (1)
  - RECTAL HAEMORRHAGE [None]
